FAERS Safety Report 9378967 (Version 1)
Quarter: 2013Q2

REPORT INFORMATION
  Report Type: Spontaneous
  Country: US (occurrence: None)
  Receive Date: 20130626
  Receipt Date: 20130626
  Transmission Date: 20140414
  Serious: Yes (Life-Threatening, Other)
  Sender: FDA-Public Use
  Company Number: 001550457A

PATIENT
  Age: 46 Year
  Sex: Female

DRUGS (3)
  1. MEANINGFUL BEAUTY ANTIOXIDANT DAY CREME SPF 20 [Suspect]
     Dosage: TWICE DAILY DERMAL
     Dates: start: 20130518, end: 20130523
  2. MEANINGFUL BEAUTY SKIN BRIGHTENING DECOLLETE NECK TREATMENT W/SPF 15 UVA/UVB [Suspect]
     Dosage: TWICE DAILY DERMAL
     Dates: start: 20130518, end: 20130523
  3. MULTIPLE DISCLOSED MEDICATIONS [Concomitant]

REACTIONS (1)
  - Anaphylactic reaction [None]
